FAERS Safety Report 6076727-5 (Version None)
Quarter: 2009Q1

REPORT INFORMATION
  Report Type: 
  Country: None (occurrence: None)
  Receive Date: 20090213
  Receipt Date: 20090210
  Transmission Date: 20090719
  Serious: Yes (Disabling)
  Sender: FDA-Public Use
  Company Number: US-ASTRAZENECA-2009UW03933

PATIENT
  Sex: Female

DRUGS (4)
  1. NEXIUM [Suspect]
     Indication: GASTROOESOPHAGEAL REFLUX DISEASE
     Route: 048
  2. CALTRATE D [Concomitant]
  3. METOPROLOL TARTRATE [Concomitant]
     Indication: BLOOD PRESSURE INCREASED
     Route: 048
  4. VITAMIN-MINERAL COMPOUND TAB [Concomitant]
     Indication: PROPHYLAXIS

REACTIONS (2)
  - ARTHRITIS [None]
  - HIP ARTHROPLASTY [None]
